FAERS Safety Report 9753200 (Version 1)
Quarter: 2013Q4

REPORT INFORMATION
  Report Type: Spontaneous
  Country: US (occurrence: US)
  Receive Date: 20131213
  Receipt Date: 20131213
  Transmission Date: 20140711
  Serious: No
  Sender: FDA-Public Use
  Company Number: US-GILEAD-2010-0027353

PATIENT
  Age: 64 Year
  Sex: Female

DRUGS (11)
  1. LETAIRIS [Suspect]
     Indication: PULMONARY ARTERIAL HYPERTENSION
     Route: 048
     Dates: start: 20091112
  2. HYDROCHLOROTHIAZIDE [Concomitant]
  3. IMURAN [Concomitant]
  4. REMICADE [Concomitant]
  5. RESTASIS [Concomitant]
  6. PERCOCET [Concomitant]
  7. ATIVAN [Concomitant]
  8. PROZAC [Concomitant]
  9. ALLEGRA [Concomitant]
  10. IRON [Concomitant]
  11. PREMARIN [Concomitant]

REACTIONS (1)
  - Decreased appetite [Not Recovered/Not Resolved]
